FAERS Safety Report 7386167-4 (Version None)
Quarter: 2011Q1

REPORT INFORMATION
  Report Type: 
  Country: None (occurrence: None)
  Receive Date: 20110329
  Receipt Date: 20110329
  Transmission Date: 20110831
  Serious: No
  Sender: FDA-Public Use
  Company Number: None

PATIENT
  Sex: Male
  Weight: 116.4 kg

DRUGS (13)
  1. ATENOLOL [Concomitant]
  2. LIRAGLUTIDE (VICTOZA) [Concomitant]
  3. ACTOS [Concomitant]
  4. QUINAPRIL (ACCUPRIL) [Concomitant]
  5. BLOOD GLUCOSE TEST STRIPS (RX)' (ONE TOUCH ULTRA TEST STRIPS) [Concomitant]
  6. NITROGLYCERIN [Concomitant]
  7. PROCHLORPERAZINE MALEATE [Concomitant]
  8. VICTOZA [Suspect]
     Indication: DIABETES MELLITUS INADEQUATE CONTROL
     Dosage: 0.6MG DAILY SUBCUTANEOUS INJECTION
     Route: 058
     Dates: start: 20110301, end: 20110317
  9. METFORMIN HCL [Concomitant]
  10. PREDNISONE [Concomitant]
  11. GLYBURIDE [Concomitant]
  12. PRILOSEC OTC [Concomitant]
  13. CRESTOR [Concomitant]

REACTIONS (8)
  - ERYTHEMA [None]
  - DIARRHOEA [None]
  - PRURITUS [None]
  - HEADACHE [None]
  - VOMITING [None]
  - DYSPNOEA [None]
  - ABDOMINAL PAIN [None]
  - BACK PAIN [None]
